FAERS Safety Report 21896352 (Version 1)
Quarter: 2023Q1

REPORT INFORMATION
  Report Type: Spontaneous
  Country: DE (occurrence: DE)
  Receive Date: 20230123
  Receipt Date: 20230123
  Transmission Date: 20230417
  Serious: No
  Sender: FDA-Public Use
  Company Number: DE-ALKEM LABORATORIES LIMITED-DE-ALKEM-2022-12700

PATIENT
  Age: 40 Year
  Sex: Female
  Weight: 91 kg

DRUGS (20)
  1. FINGOLIMOD [Suspect]
     Active Substance: FINGOLIMOD
     Indication: Relapsing-remitting multiple sclerosis
     Dosage: 0.56 MILLIGRAMS (TABLET)
     Route: 048
     Dates: start: 20210204
  2. BACLOFEN [Concomitant]
     Active Substance: BACLOFEN
     Indication: Pain
     Dosage: 25 MILLIGRAMS
     Route: 048
     Dates: start: 202012, end: 202101
  3. BACLOFEN [Concomitant]
     Active Substance: BACLOFEN
     Dosage: 10 MILLIGRAM, QD
     Route: 048
     Dates: start: 20220224
  4. BACLOFEN [Concomitant]
     Active Substance: BACLOFEN
     Dosage: 10 MILLIGRAM, QD
     Route: 048
     Dates: start: 20211029, end: 202203
  5. CIMETIDINE [Concomitant]
     Active Substance: CIMETIDINE
     Indication: Prophylaxis
     Dosage: 200 MILLIGRAMS (EVERY 0.5 YEAR)
     Route: 042
     Dates: start: 20210819
  6. COMIRNATY [Concomitant]
     Active Substance: TOZINAMERAN
     Indication: COVID-19 immunisation
     Dosage: 0.3 MILLILITERS (1 TOTAL)
     Route: 030
     Dates: start: 20211221, end: 20211221
  7. COMIRNATY [Concomitant]
     Active Substance: TOZINAMERAN
     Dosage: 0.3 MILLILITERS (1 TOTAL)
     Route: 030
     Dates: start: 20210625, end: 20210625
  8. COMIRNATY [Concomitant]
     Active Substance: TOZINAMERAN
     Dosage: 0.3 MILLILITERS (1 TOTAL)
     Route: 030
     Dates: start: 20210512, end: 20210512
  9. DIMETHINDENE MALEATE [Concomitant]
     Active Substance: DIMETHINDENE MALEATE
     Indication: Prophylaxis
     Dosage: 4 MILLIGRAMS, (EVERY 0.5 YEAR)
     Route: 042
     Dates: start: 20210819
  10. FLUOXETINE [Concomitant]
     Active Substance: FLUOXETINE HYDROCHLORIDE
     Indication: Depression
     Dosage: 20 MILLIGRAM, QD
     Route: 048
     Dates: start: 202102, end: 202204
  11. FLUOXETINE [Concomitant]
     Active Substance: FLUOXETINE HYDROCHLORIDE
     Dosage: 20 MILLIGRAMS, (0.5 TOTAL)
     Route: 048
     Dates: start: 20220430
  12. IBUPROFEN [Concomitant]
     Active Substance: IBUPROFEN
     Indication: Migraine
     Dosage: UNK, 1 AS NECESSARY
     Route: 048
  13. IBUPROFEN [Concomitant]
     Active Substance: IBUPROFEN
     Indication: Pain
  14. DESOGESTREL [Concomitant]
     Active Substance: DESOGESTREL
     Indication: Contraception
     Dosage: UNK
     Route: 048
  15. OPIPRAMOL [Concomitant]
     Active Substance: OPIPRAMOL
     Indication: Anxiety disorder
     Dosage: 50 MILLIGRAMS, (3 AS NECESSARY)
     Route: 048
     Dates: end: 202201
  16. OCREVUS [Concomitant]
     Active Substance: OCRELIZUMAB
     Indication: Multiple sclerosis
     Dosage: 300 MILLIGRAMS, (EVERY 0.5 MONTH)
     Route: 042
     Dates: start: 20210819, end: 20210902
  17. OCREVUS [Concomitant]
     Active Substance: OCRELIZUMAB
     Dosage: 600 MILLIGRAMS,(EVERY 0.5 YEAR)
     Route: 042
     Dates: start: 20220303
  18. ACETAMINOPHEN [Concomitant]
     Active Substance: ACETAMINOPHEN
     Indication: Prophylaxis
     Dosage: 500 MILLIGRAMS, (EVERY 0.5 YEAR)
     Route: 048
     Dates: start: 20210819
  19. PREDNISOLONE [Concomitant]
     Active Substance: PREDNISOLONE
     Indication: Prophylaxis
     Dosage: 100 MILLIGRAMS, (EVERY 0.5 YEAR)
     Route: 042
     Dates: start: 20210819
  20. VITAMIN B12 [Concomitant]
     Active Substance: CYANOCOBALAMIN
     Indication: Vitamin B12 deficiency
     Dosage: UNK, (EVERY 1 MONTH)
     Route: 030
     Dates: start: 202006

REACTIONS (1)
  - Lymphocyte count decreased [Recovered/Resolved]

NARRATIVE: CASE EVENT DATE: 20210730
